FAERS Safety Report 10305978 (Version 2)
Quarter: 2014Q3

REPORT INFORMATION
  Report Type: Report from Study
  Country: CA (occurrence: CA)
  Receive Date: 20140715
  Receipt Date: 20140716
  Transmission Date: 20150326
  Serious: Yes (Life-Threatening, Hospitalization)
  Sender: FDA-Public Use
  Company Number: CA-JNJFOC-20140707910

PATIENT
  Age: 22 Year
  Sex: Male
  Weight: 69.6 kg

DRUGS (3)
  1. REMICADE [Suspect]
     Active Substance: INFLIXIMAB
     Indication: CROHN^S DISEASE
     Route: 042
     Dates: start: 20120321
  2. ENTOCORT [Concomitant]
     Active Substance: BUDESONIDE
     Route: 065
  3. IRON PILLS [Concomitant]
     Route: 065

REACTIONS (2)
  - Ileal perforation [Unknown]
  - Peritonitis [Unknown]

NARRATIVE: CASE EVENT DATE: 201406
